FAERS Safety Report 17547070 (Version 1)
Quarter: 2020Q1

REPORT INFORMATION
  Report Type: Spontaneous
  Country: AT (occurrence: AT)
  Receive Date: 20200316
  Receipt Date: 20200316
  Transmission Date: 20200409
  Serious: Yes (Other)
  Sender: FDA-Public Use
  Company Number: NVSC2020AT067712

PATIENT
  Age: 50 Year
  Sex: Female
  Weight: 75 kg

DRUGS (1)
  1. LAMOTRIGIN 1A FARMA 100 MG DISPERGERBARA TABLETTER [Suspect]
     Active Substance: LAMOTRIGINE
     Indication: EPILEPSY
     Dosage: 2 DF, QD
     Route: 048
     Dates: start: 20170306, end: 20170308

REACTIONS (5)
  - Headache [Unknown]
  - Heart rate increased [Unknown]
  - Seizure [Unknown]
  - Dizziness [Unknown]
  - Speech disorder [Unknown]

NARRATIVE: CASE EVENT DATE: 20170306
